FAERS Safety Report 6402780-2 (Version None)
Quarter: 2009Q4

REPORT INFORMATION
  Report Type: 
  Country: None (occurrence: None)
  Receive Date: 20091016
  Receipt Date: 20070330
  Transmission Date: 20100525
  Serious: Yes (Disabling)
  Sender: FDA-Public Use
  Company Number: US-ASTRAZENECA-2006UW08477

PATIENT
  Sex: Female

DRUGS (13)
  1. SEROQUEL [Suspect]
     Dosage: 100 MG TO 600 MG
     Route: 048
     Dates: start: 20000306
  2. GLUCOPHAGE XR [Concomitant]
     Indication: DIABETES MELLITUS
     Dates: start: 20010731
  3. AVANDIA [Concomitant]
     Dates: start: 20000928
  4. ELAVIL [Concomitant]
     Route: 048
     Dates: start: 19931214
  5. MONOPRIL [Concomitant]
     Route: 048
     Dates: start: 19931214
  6. NPH INSULIN [Concomitant]
     Dosage: 38 UNITS IN MORNING, 18 UNITS EVENING
     Route: 058
     Dates: start: 19931214
  7. PROZAC [Concomitant]
     Route: 048
     Dates: start: 19931108
  8. XANAX [Concomitant]
     Route: 048
     Dates: start: 20020612
  9. WARFARIN SODIUM [Concomitant]
     Indication: COAGULOPATHY
     Dosage: 5 MG DISPENSED
     Dates: start: 20020509
  10. LOTENSIN HCT [Concomitant]
     Dosage: 12.5 MG/10, DAILY
     Dates: start: 20000306
  11. EFFEXOR XR [Concomitant]
     Route: 048
     Dates: start: 20000306
  12. PROTONIX [Concomitant]
     Dates: start: 20020612
  13. HUMULIN N [Concomitant]
     Dosage: 46 UNITS IN MORNING AND 30 UNITS IN EVENING
     Dates: start: 20000306

REACTIONS (1)
  - ILL-DEFINED DISORDER [None]
